FAERS Safety Report 10090033 (Version 2)
Quarter: 2014Q2

REPORT INFORMATION
  Report Type: Spontaneous
  Country: US (occurrence: US)
  Receive Date: 20140421
  Receipt Date: 20140506
  Transmission Date: 20141212
  Serious: No
  Sender: FDA-Public Use
  Company Number: PHEH2014US007513

PATIENT
  Sex: Female

DRUGS (12)
  1. EXELON PATCH [Suspect]
     Indication: MEMORY IMPAIRMENT
     Dosage: 4.6 MG, UNK
     Route: 062
  2. EXELON PATCH [Suspect]
     Indication: PARKINSON^S DISEASE
     Dosage: 9.5 MG, QD
     Route: 062
  3. CLONAZEPAM [Concomitant]
     Indication: INSOMNIA
     Dosage: 2 DF, AT BED TIME
  4. CLOPIDOGREL [Concomitant]
     Dosage: 75 MG, QD
  5. CREON [Concomitant]
     Indication: PANCREATITIS
     Dosage: 2400 U, BID
  6. MIRAPEX [Concomitant]
     Indication: PARKINSON^S DISEASE
     Dosage: 4.5 MG, HS (AT BED TIME)
  7. CARBIDOPA/LEVODOPA [Concomitant]
     Indication: PARKINSON^S DISEASE
     Dosage: 25/100MG, QID
  8. AZILECT [Concomitant]
     Indication: PARKINSON^S DISEASE
     Dosage: 1 MG, QD
  9. LACTAID [Concomitant]
     Indication: LACTOSE INTOLERANCE
     Dosage: UNK UKN, PRN
  10. AMITRIPTYLINE [Concomitant]
     Indication: MIGRAINE
     Dosage: UNK UKN, PRN
  11. MULTIVIT//VITAMINS NOS [Concomitant]
     Dosage: UNK UKN, UNK
  12. BOTOX [Concomitant]
     Dosage: UNK UKN, EVERY 3 MONTHS

REACTIONS (5)
  - Visual impairment [Unknown]
  - Oedema peripheral [Unknown]
  - Hypersensitivity [Unknown]
  - Headache [Unknown]
  - Gait disturbance [Unknown]
